FAERS Safety Report 8477315-3 (Version None)
Quarter: 2012Q2

REPORT INFORMATION
  Report Type: 
  Country: None (occurrence: None)
  Receive Date: 20120622
  Receipt Date: 20120615
  Transmission Date: 20120825
  Serious: Yes (Hospitalization, Disabling)
  Sender: FDA-Public Use
  Company Number: 2010SP002783

PATIENT
  Age: 24 Year
  Sex: Female

DRUGS (2)
  1. NUVARING [Suspect]
     Indication: CONTRACEPTION
     Dosage: 1 DF;QM;VAG, 1 DF;QM;VAG
     Route: 067
     Dates: start: 20080909, end: 20091025
  2. NUVARING [Suspect]
     Indication: CONTRACEPTION
     Dosage: 1 DF;QM;VAG, 1 DF;QM;VAG
     Route: 067
     Dates: start: 20060517, end: 20070223

REACTIONS (25)
  - CEREBROVASCULAR ACCIDENT [None]
  - MIGRAINE [None]
  - POSTPARTUM DEPRESSION [None]
  - VOMITING [None]
  - VERTIGO [None]
  - TRANSIENT ISCHAEMIC ATTACK [None]
  - URINE ABNORMALITY [None]
  - TREMOR [None]
  - DEPRESSION [None]
  - PYREXIA [None]
  - HYPERTENSION [None]
  - DYSPNOEA [None]
  - VISUAL IMPAIRMENT [None]
  - CONVULSION [None]
  - HYPOTENSION [None]
  - ANTIPHOSPHOLIPID SYNDROME [None]
  - DIZZINESS [None]
  - DERMATITIS ATOPIC [None]
  - ABDOMINAL PAIN [None]
  - VISION BLURRED [None]
  - AUTOIMMUNE DISORDER [None]
  - STRESS [None]
  - PUPIL FIXED [None]
  - EYE MOVEMENT DISORDER [None]
  - URTICARIA [None]
